FAERS Safety Report 8614663-8 (Version None)
Quarter: 2012Q3

REPORT INFORMATION
  Report Type: 
  Country: None (occurrence: None)
  Receive Date: 20120823
  Receipt Date: 20120815
  Transmission Date: 20120928
  Serious: Yes (Hospitalization)
  Sender: FDA-Public Use
  Company Number: US-US-EMD SERONO, INC.-7115304

PATIENT
  Sex: Female
  Weight: 64 kg

DRUGS (7)
  1. VITAMIN B-12 [Concomitant]
     Indication: SUPPLEMENTATION THERAPY
  2. PAXIL [Concomitant]
     Indication: DEPRESSION
     Dates: start: 20100101
  3. TOPAMAX [Concomitant]
     Indication: MIGRAINE
  4. TRIAMTERENE AND HYDROCHLOROTHIAZIDE [Concomitant]
     Indication: FLUID RETENTION
     Dates: start: 20110101
  5. REBIF [Suspect]
     Indication: MULTIPLE SCLEROSIS
     Route: 058
     Dates: start: 20111013
  6. VITAMIN D [Concomitant]
     Indication: SUPPLEMENTATION THERAPY
  7. GABAPENTIN [Concomitant]
     Indication: PAIN

REACTIONS (8)
  - WEIGHT INCREASED [None]
  - INJECTION SITE PRURITUS [None]
  - DEHYDRATION [None]
  - BLOOD POTASSIUM DECREASED [None]
  - INJECTION SITE ERYTHEMA [None]
  - PROTEINURIA [None]
  - FLUID RETENTION [None]
  - FATIGUE [None]
